FAERS Safety Report 9025649 (Version 1)
Quarter: 2013Q1

REPORT INFORMATION
  Report Type: Spontaneous
  Country: US (occurrence: US)
  Receive Date: 20130123
  Receipt Date: 20130123
  Transmission Date: 20140127
  Serious: Yes (Hospitalization)
  Sender: FDA-Public Use
  Company Number: US-009507513-1301USA009182

PATIENT
  Age: 92 Year
  Sex: Male

DRUGS (1)
  1. INVANZ [Suspect]
     Indication: URINARY TRACT INFECTION
     Dosage: 1 G, QD
     Route: 042

REACTIONS (2)
  - Belligerence [Unknown]
  - Confusional state [Unknown]
